FAERS Safety Report 21405371 (Version 2)
Quarter: 2024Q1

REPORT INFORMATION
  Report Type: Spontaneous
  Country: US (occurrence: US)
  Receive Date: 20221004
  Receipt Date: 20240226
  Transmission Date: 20240410
  Serious: No
  Sender: FDA-Public Use
  Company Number: US-ELI_LILLY_AND_COMPANY-US202209004290

PATIENT
  Age: 75 Year
  Sex: Male

DRUGS (8)
  1. MOUNJARO [Interacting]
     Active Substance: TIRZEPATIDE
     Indication: Product used for unknown indication
     Dosage: 2.5 MG, UNKNOWN
     Route: 065
     Dates: start: 20220829
  2. MOUNJARO [Interacting]
     Active Substance: TIRZEPATIDE
     Indication: Product used for unknown indication
     Dosage: 2.5 MG, UNKNOWN
     Route: 065
     Dates: start: 20220829
  3. MOUNJARO [Interacting]
     Active Substance: TIRZEPATIDE
     Indication: Product used for unknown indication
     Dosage: 2.5 MG, UNKNOWN
     Route: 065
     Dates: start: 20220829
  4. MOUNJARO [Interacting]
     Active Substance: TIRZEPATIDE
     Indication: Product used for unknown indication
     Dosage: 2.5 MG, UNKNOWN
     Route: 065
     Dates: start: 20220829
  5. HUMALOG [Suspect]
     Active Substance: INSULIN LISPRO
     Indication: Product used for unknown indication
     Dosage: 88 U, DAILY (26UNITS BEFORE BREAKFAST + LUNCH + 36 UNITS BEFORE DINNER)
     Route: 065
  6. JARDIANCE [Interacting]
     Active Substance: EMPAGLIFLOZIN
     Indication: Product used for unknown indication
     Dosage: UNK UNK, UNKNOWN
     Route: 065
     Dates: end: 20220905
  7. LANTUS [Concomitant]
     Active Substance: INSULIN GLARGINE
     Dosage: 40 MG, UNKNOWN
     Route: 065
  8. ELIQUIS [Concomitant]
     Active Substance: APIXABAN
     Dosage: UNK

REACTIONS (5)
  - Insomnia [Recovered/Resolved]
  - Drug interaction [Recovered/Resolved]
  - Decreased appetite [Unknown]
  - Blood glucose decreased [Unknown]
  - Glycosylated haemoglobin increased [Unknown]

NARRATIVE: CASE EVENT DATE: 20220901
